FAERS Safety Report 9002713 (Version 1)
Quarter: 2013Q1

REPORT INFORMATION
  Report Type: Spontaneous
  Country: US (occurrence: US)
  Receive Date: 20130107
  Receipt Date: 20130107
  Transmission Date: 20140127
  Serious: No
  Sender: FDA-Public Use
  Company Number: US-GLAXOSMITHKLINE-A0993579A

PATIENT
  Age: 57 Year
  Sex: Female
  Weight: 51.76 kg

DRUGS (14)
  1. BENLYSTA [Suspect]
     Indication: SYSTEMIC LUPUS ERYTHEMATOSUS
     Route: 042
     Dates: start: 20110513
  2. PREDNISONE [Concomitant]
     Dosage: 15MG PER DAY
  3. FUROSEMIDE [Concomitant]
     Dosage: 80MG PER DAY
  4. ATENOLOL [Concomitant]
     Dosage: 50MG PER DAY
  5. LISINOPRIL [Concomitant]
     Dosage: 2.5MG PER DAY
  6. PRAVACHOL [Concomitant]
     Dosage: 60MG PER DAY
  7. COUMADIN [Concomitant]
  8. MAGNESIUM [Concomitant]
  9. POTASSIUM [Concomitant]
  10. MULTIVITAMIN [Concomitant]
  11. CALCIUM [Concomitant]
  12. VICODIN [Concomitant]
  13. AMBIEN [Concomitant]
  14. COLCRYS [Concomitant]

REACTIONS (5)
  - Localised infection [Not Recovered/Not Resolved]
  - Joint swelling [Not Recovered/Not Resolved]
  - Skin exfoliation [Not Recovered/Not Resolved]
  - Erythema [Recovered/Resolved]
  - Arthralgia [Unknown]
